FAERS Safety Report 5491644-7 (Version None)
Quarter: 2007Q4

REPORT INFORMATION
  Report Type: 
  Country: None (occurrence: None)
  Receive Date: 20071022
  Receipt Date: 20071012
  Transmission Date: 20080405
  Serious: Yes (Hospitalization)
  Sender: FDA-Public Use
  Company Number: GB-NOVOPROD-268441

PATIENT
  Sex: Female
  Weight: 54.3 kg

DRUGS (15)
  1. INSULIN DETEMIR FLEXPEN [Suspect]
     Indication: INSULIN-REQUIRING TYPE II DIABETES MELLITUS
     Dosage: 28 IU, QD
     Route: 058
     Dates: start: 20050513
  2. NOVORAPID FLEXPEN [Suspect]
     Indication: INSULIN-REQUIRING TYPE II DIABETES MELLITUS
     Dosage: 44 IU, QD
     Route: 058
     Dates: start: 20061130
  3. ATENOLOL [Concomitant]
     Dosage: 50 MG, QD
     Route: 048
     Dates: start: 20050917
  4. PREDNISOLONE [Concomitant]
     Dosage: 15 MG, QD
     Route: 048
     Dates: start: 20060928
  5. OMEPRAZOLE [Concomitant]
     Dosage: 20 MG, QD
     Route: 048
     Dates: start: 19970314
  6. AMLODIPINE [Concomitant]
     Dosage: 10 MG, QD
     Route: 048
     Dates: start: 19980306
  7. CALCICHEW D3 FORTE [Concomitant]
     Dosage: 2 TAB, QD
  8. ISOSORBIDE MONONITRATE [Concomitant]
     Dosage: 60 MG, QD
     Route: 048
     Dates: start: 19990312
  9. FERROUS SULPHATE                   /00023503/ [Concomitant]
     Dosage: 200 MG, QD
     Route: 048
  10. FOLIC ACID [Concomitant]
     Dosage: 5 MG, QD
     Route: 048
  11. FUROSEMIDE [Concomitant]
     Dosage: 40 MG, QD
     Route: 048
  12. LEVOTHYROXINE SODIUM [Concomitant]
     Dosage: 75 UG, QD
     Route: 048
  13. NICORANDIL [Concomitant]
     Dosage: 10 MG, QD
     Route: 048
  14. SIMVASTATIN [Concomitant]
     Dosage: 40 MG, QD
     Route: 048
  15. WARFARIN [Concomitant]

REACTIONS (2)
  - FALL [None]
  - HEAD INJURY [None]
